FAERS Safety Report 8366617-7 (Version None)
Quarter: 2012Q2

REPORT INFORMATION
  Report Type: 
  Country: None (occurrence: None)
  Receive Date: 20120516
  Receipt Date: 20120516
  Transmission Date: 20120825
  Serious: Yes (Other)
  Sender: FDA-Public Use
  Company Number: None

PATIENT
  Sex: Female
  Weight: 58.9676 kg

DRUGS (1)
  1. FLUTICASONE PROPIONATE [Suspect]
     Indication: UPPER-AIRWAY COUGH SYNDROME
     Dosage: 2 SPRAYS IN EACH NOSTRIL DAILY
     Dates: start: 20120201, end: 20120208

REACTIONS (1)
  - ABDOMINAL PAIN [None]
